FAERS Safety Report 8803101 (Version 1)
Quarter: 2012Q4

REPORT INFORMATION
  Report Type: 
  Country: BR (occurrence: BR)
  Receive Date: 20120924
  Receipt Date: 20120924
  Transmission Date: 20130627
  Serious: Yes (Hospitalization, Other)
  Sender: FDA-Public Use
  Company Number: PHHY2012BR081940

PATIENT
  Sex: Male
  Weight: 78 kg

DRUGS (4)
  1. TEGRETOL [Suspect]
     Indication: CONVULSION
     Dosage: 200 mg, UNK
     Route: 048
  2. TEGRETOL [Suspect]
     Dosage: 200 mg, 3.5 DF, (3 tablets and half, totaling 700 mg)
     Route: 048
  3. TEGRETOL [Suspect]
     Dosage: 1200 mg, Daily
     Route: 048
  4. EPILENIL [Concomitant]
     Indication: EPILEPSY
     Dosage: 6 DF, Daily (3 in morning and 3 in night)
     Route: 048

REACTIONS (5)
  - Coma [Recovered/Resolved]
  - Convulsion [Recovered/Resolved]
  - Device dislocation [Unknown]
  - Device occlusion [Unknown]
  - Weight increased [Unknown]
